FAERS Safety Report 10077429 (Version 1)
Quarter: 2014Q2

REPORT INFORMATION
  Report Type: Spontaneous
  Country: US (occurrence: US)
  Receive Date: 20140414
  Receipt Date: 20140414
  Transmission Date: 20141212
  Serious: No
  Sender: FDA-Public Use
  Company Number: US-009507513-1403USA004513

PATIENT
  Age: 20 Year
  Sex: Female
  Weight: 77.98 kg

DRUGS (3)
  1. CLARITIN-D-24 [Suspect]
     Indication: NASOPHARYNGITIS
     Dosage: 10 MG, ONCE
     Route: 048
     Dates: start: 20140228
  2. CLARITIN-D-24 [Suspect]
     Dosage: 10 MG, ONCE
     Route: 048
     Dates: start: 20140301
  3. HUMALOG [Concomitant]
     Indication: PRODUCT USED FOR UNKNOWN INDICATION
     Dosage: UNK, UNKNOWN

REACTIONS (2)
  - Overdose [Unknown]
  - No adverse event [Unknown]
